FAERS Safety Report 7164251-8 (Version None)
Quarter: 2010Q4

REPORT INFORMATION
  Report Type: 
  Country: None (occurrence: None)
  Receive Date: 20101201
  Receipt Date: 20101116
  Transmission Date: 20110411
  Serious: Yes (Hospitalization)
  Sender: FDA-Public Use
  Company Number: DSA_44411_2010

PATIENT
  Sex: Female

DRUGS (4)
  1. ELONTRIL (ELONTRIL- BUPROPION HYDROCHLORIDE EXTENDED RELEASE) 150 MG ( [Suspect]
     Indication: DEPRESSION
     Dosage: (150 MG QD ORAL)
     Route: 048
     Dates: start: 20100201
  2. ZOLPIDEM [Concomitant]
  3. LITHIUM CARBONATE [Concomitant]
  4. CITALOPRAM [Concomitant]

REACTIONS (2)
  - ACUTE MYOCARDIAL INFARCTION [None]
  - CORONARY ARTERY OCCLUSION [None]
